FAERS Safety Report 11313374 (Version 6)
Quarter: 2016Q3

REPORT INFORMATION
  Report Type: Report from Study
  Country: DE (occurrence: DE)
  Receive Date: 20150727
  Receipt Date: 20160831
  Transmission Date: 20161109
  Serious: Yes (Hospitalization)
  Sender: FDA-Public Use
  Company Number: DE-BAXALTA-2015BLT000620

PATIENT
  Age: 18 Year
  Sex: Male
  Weight: 77.4 kg

DRUGS (15)
  1. PANTOZOL [Concomitant]
     Active Substance: PANTOPRAZOLE SODIUM
     Indication: HELICOBACTER TEST POSITIVE
     Dosage: 40 MG, 2X A DAY
     Route: 048
     Dates: start: 20150209
  2. FEIBA NF [Suspect]
     Active Substance: ANTI-INHIBITOR COAGULANT COMPLEX
     Indication: PROPHYLAXIS
     Dosage: 5000 IU, EVERY OTHER DAY
     Route: 042
     Dates: start: 20150710, end: 20150710
  3. FEIBA NF [Suspect]
     Active Substance: ANTI-INHIBITOR COAGULANT COMPLEX
     Indication: HAEMOPHILIA A WITH ANTI FACTOR VIII
  4. FERROSANOL [Concomitant]
     Active Substance: FERROUS GLUCONATE
     Indication: IRON DEFICIENCY
     Dosage: 100 MG, 2X A DAY
     Route: 048
     Dates: start: 20150209
  5. CLARITHROMYCIN. [Concomitant]
     Active Substance: CLARITHROMYCIN
     Indication: GASTROINTESTINAL HAEMORRHAGE
     Dosage: 250 MG, 2X A DAY
     Route: 048
     Dates: start: 20150609, end: 20150616
  6. METRONIDAZOL [Concomitant]
     Active Substance: METRONIDAZOLE
     Indication: HELICOBACTER INFECTION
     Dosage: 400 MG, 2X A DAY
     Route: 048
     Dates: start: 20150609, end: 20150616
  7. NEXIUM [Concomitant]
     Active Substance: ESOMEPRAZOLE MAGNESIUM
     Indication: GASTROINTESTINAL HAEMORRHAGE
     Dosage: 40 MG, 2X A DAY
     Route: 048
     Dates: start: 20150609, end: 20150616
  8. IBUPROFEN AL [Concomitant]
     Active Substance: IBUPROFEN
     Indication: ARTHRITIS
     Dosage: 600 MG, AS NEEDED
     Route: 048
     Dates: start: 20141223
  9. ARCOXIA [Concomitant]
     Active Substance: ETORICOXIB
     Indication: ARTHRITIS
     Dosage: 90 MG, AS NEEDED
     Route: 048
     Dates: start: 20141223
  10. CEFUROXIM [Concomitant]
     Active Substance: CEFUROXIME
     Indication: DEVICE RELATED INFECTION
     Dosage: UNK UNK, AS NEEDED
     Route: 048
     Dates: start: 20141224
  11. NOVALGIN [Concomitant]
     Active Substance: METAMIZOLE SODIUM
     Indication: PAIN
     Dosage: DROPS, AS NEEDED
     Route: 048
     Dates: start: 20150604, end: 20150622
  12. NOVOSEVEN [Concomitant]
     Active Substance: COAGULATION FACTOR VIIA RECOMBINANT HUMAN
     Indication: HAEMORRHAGE
     Dosage: UNK UNK, AS NEEDED
     Route: 042
     Dates: start: 20141223
  13. ZACPAC [Concomitant]
     Active Substance: AMOXICILLIN\CLARITHROMYCIN\PANTOPRAZOLE
     Indication: HELICOBACTER TEST POSITIVE
  14. DICLOFENAC [Concomitant]
     Active Substance: DICLOFENAC
     Indication: ARTHROPATHY
     Dosage: UNK
     Route: 048
     Dates: start: 201505, end: 201506
  15. ROCEPHIN [Concomitant]
     Active Substance: CEFTRIAXONE SODIUM
     Indication: DEVICE RELATED INFECTION
     Dosage: UNK UNK, AS NEEDED
     Route: 042
     Dates: start: 20141224

REACTIONS (2)
  - Device related infection [Recovered/Resolved]
  - Thrombosis [Recovered/Resolved]

NARRATIVE: CASE EVENT DATE: 20150710
